FAERS Safety Report 7632436 (Version 5)
Quarter: 2013Q1

REPORT INFORMATION
  Report Type: Spontaneous
  Country: US (occurrence: US)
  Receive Date: 20101018
  Receipt Date: 20130102
  Transmission Date: 20140127
  Serious: Yes (Death)
  Sender: FDA-Public Use
  Company Number: US-BAYER-201036882NA

PATIENT
  Age: 24 Year
  Sex: Female
  Weight: 113 kg

DRUGS (3)
  1. YAZ [Suspect]
     Indication: CONTRACEPTION
     Dosage: UNK
     Route: 048
     Dates: start: 20090708, end: 20100323
  2. ALBUTEROL [Concomitant]
     Indication: ASTHMA
  3. QVAR [Concomitant]
     Indication: ASTHMA

REACTIONS (2)
  - Pulmonary embolism [Fatal]
  - Deep vein thrombosis [Fatal]
